FAERS Safety Report 10966520 (Version 1)
Quarter: 2015Q1

REPORT INFORMATION
  Report Type: Spontaneous
  Country: CA (occurrence: CA)
  Receive Date: 20150330
  Receipt Date: 20150330
  Transmission Date: 20150721
  Serious: Yes (Other)
  Sender: FDA-Public Use
  Company Number: CA-NOVOPROD-442924

PATIENT
  Age: 68 Year
  Sex: Male

DRUGS (2)
  1. NOVORAPID [Suspect]
     Active Substance: INSULIN ASPART
     Indication: DIABETES MELLITUS
     Dosage: UNK
     Route: 058
  2. LANTUS [Suspect]
     Active Substance: INSULIN GLARGINE
     Indication: DIABETES MELLITUS
     Dosage: 10 IU, QD
     Route: 058

REACTIONS (3)
  - Wrong drug administered [Unknown]
  - Visual acuity reduced [Recovered/Resolved]
  - Blood glucose abnormal [Recovered/Resolved]
